FAERS Safety Report 8898684 (Version 2)
Quarter: 2012Q4

REPORT INFORMATION
  Report Type: Report from Study
  Country: US (occurrence: US)
  Receive Date: 20121109
  Receipt Date: 20121120
  Transmission Date: 20130627
  Serious: Yes (Hospitalization)
  Sender: FDA-Public Use
  Company Number: US-ACTELION-A-NJ2012-74014

PATIENT
  Age: 69 Year
  Sex: Female

DRUGS (14)
  1. TRACLEER [Suspect]
     Indication: PULMONARY ARTERIAL HYPERTENSION
     Dosage: 125 mg, bid
     Route: 048
  2. SILDENAFIL [Concomitant]
     Dosage: 20 mg, tid
     Route: 048
  3. COUMADIN [Concomitant]
     Dosage: 7.5 mg, qd, at night
     Route: 048
  4. ASPIRIN [Concomitant]
  5. TORSEMIDE [Concomitant]
     Dosage: 20 mg, qd
     Route: 048
  6. OMEPRAZOLE [Concomitant]
     Dosage: 40 mg, qd
     Route: 048
  7. ZOCOR [Concomitant]
     Dosage: 40 mg, qd, bedtime
     Route: 048
  8. JANUVIA [Concomitant]
     Dosage: 50 mg, qd
     Route: 048
  9. KCL [Concomitant]
     Dosage: 2, 10mEq Tablets qd
     Route: 048
  10. LEVOXYL [Concomitant]
     Dosage: 25 mcg, qd
     Route: 048
  11. CALCIUM CARBONATE W/VITAMIN D [Concomitant]
     Dosage: 600-200 mg, bid
     Route: 048
  12. FERROUS SULFATE [Concomitant]
     Dosage: 325 mg (65 mg Fe) , tid
     Route: 048
  13. COLACE [Concomitant]
     Dosage: 100 mg, tid
     Route: 048
  14. FLUTICASONE PROPIONATE [Concomitant]
     Dosage: 50 mcg, 2 puffs each nostril daily
     Route: 045

REACTIONS (14)
  - Deep vein thrombosis [Unknown]
  - Pulmonary embolism [Unknown]
  - Asthenia [Unknown]
  - Dyspnoea [Unknown]
  - Dyspnoea exertional [Unknown]
  - Atrial flutter [Unknown]
  - Tremor [Unknown]
  - Mobility decreased [Unknown]
  - Urinary tract infection [Unknown]
  - Nervousness [Unknown]
  - Nausea [Unknown]
  - Hypoxia [Unknown]
  - Cardiac failure congestive [Unknown]
  - Hypotension [Unknown]
